FAERS Safety Report 9500066 (Version 3)
Quarter: 2013Q4

REPORT INFORMATION
  Report Type: Report from Study
  Country: BR (occurrence: BR)
  Receive Date: 20130905
  Receipt Date: 20131105
  Transmission Date: 20140711
  Serious: Yes (Hospitalization, Other)
  Sender: FDA-Public Use
  Company Number: PHHY2013BR094274

PATIENT
  Age: 59 Year
  Sex: Male

DRUGS (4)
  1. SANDOSTATIN LAR [Suspect]
     Indication: ACROMEGALY
     Dosage: 30 MG, MONTHLY
     Route: 030
     Dates: start: 2009
  2. SANDOSTATIN LAR [Suspect]
     Indication: BLOOD GROWTH HORMONE INCREASED
  3. CABERGOLINE [Concomitant]
     Dosage: UNK UKN, UNK
  4. ANTIBIOTICS [Concomitant]
     Dosage: UNK UKN, UNK

REACTIONS (4)
  - Cholelithiasis [Recovering/Resolving]
  - Blood bilirubin abnormal [Recovering/Resolving]
  - Bile duct obstruction [Unknown]
  - Hepatitis [Recovering/Resolving]
